FAERS Safety Report 9958932 (Version 1)
Quarter: 2014Q1

REPORT INFORMATION
  Report Type: Spontaneous
  Country: US (occurrence: None)
  Receive Date: 20140228
  Receipt Date: 20140228
  Transmission Date: 20141002
  Serious: Yes (Other)
  Sender: FDA-Public Use
  Company Number: None

PATIENT
  Age: 74 Year
  Sex: Male
  Weight: 69.85 kg

DRUGS (6)
  1. CIALIS [Suspect]
     Indication: ERECTILE DYSFUNCTION
     Dosage: 20 MG, 1 PILL, WHEN NEEDED PER 36 HOURS, BY MOUTH
     Route: 048
  2. AMLODIPINE BESYLATE [Concomitant]
  3. EQUATE COMPLETE MULTIVITAMIN [Concomitant]
  4. D3 [Concomitant]
  5. IRON [Concomitant]
  6. BAYER ASPIRIN [Concomitant]

REACTIONS (1)
  - Drug effect decreased [None]
